FAERS Safety Report 4313911-2 (Version None)
Quarter: 2004Q1

REPORT INFORMATION
  Report Type: 
  Country: None (occurrence: None)
  Receive Date: 20040305
  Receipt Date: 20040223
  Transmission Date: 20041129
  Serious: Yes (Disabling)
  Sender: FDA-Public Use
  Company Number: 2003-BP-09126BP

PATIENT
  Age: 62 Year
  Sex: Male

DRUGS (6)
  1. MICARDIS [Suspect]
     Indication: CEREBROVASCULAR ACCIDENT PROPHYLAXIS
     Dosage: SEE TEXT PO
     Route: 048
     Dates: start: 20021230, end: 20031005
  2. GEMFIBROZIL [Suspect]
     Dates: end: 20030101
  3. ASPIRIN [Concomitant]
  4. ZOCOR [Concomitant]
  5. FAMVIR [Concomitant]
  6. MULTIVITAMIN [Concomitant]

REACTIONS (3)
  - MOBILITY DECREASED [None]
  - MUSCULOSKELETAL PAIN [None]
  - MYALGIA [None]
